FAERS Safety Report 17763154 (Version 1)
Quarter: 2020Q2

REPORT INFORMATION
  Report Type: Spontaneous
  Country: DE (occurrence: DE)
  Receive Date: 20200508
  Receipt Date: 20200508
  Transmission Date: 20200714
  Serious: Yes (Hospitalization)
  Sender: FDA-Public Use
  Company Number: DE-009507513-2005DEU001914

PATIENT
  Age: 71 Year
  Sex: Male

DRUGS (10)
  1. PEMBROLIZUMAB. [Suspect]
     Active Substance: PEMBROLIZUMAB
     Dosage: UNK MG, ACCORDING TO SCHEME
  2. PEMETREXED DISODIUM [Suspect]
     Active Substance: PEMETREXED DISODIUM
     Dosage: UNK MG, ACCORDING TO SCHEME
  3. PANTOPRAZOLE [Concomitant]
     Active Substance: PANTOPRAZOLE
     Dosage: 40 MG, 0-0-1-0
  4. ASPIRIN. [Concomitant]
     Active Substance: ASPIRIN
     Dosage: 100 MG, 1-0-0-0
  5. ATORVASTATIN [Concomitant]
     Active Substance: ATORVASTATIN
     Dosage: 40 MG, 0-0-1-0
  6. DIPYRONE [Concomitant]
     Active Substance: DIPYRONE
     Dosage: 500 MG, 1-1-1-1
  7. CISPLATIN. [Suspect]
     Active Substance: CISPLATIN
     Dosage: UNK MG, ACCORDING TO SCHEME
  8. METOPROLOL. [Concomitant]
     Active Substance: METOPROLOL
     Dosage: 47.5 MG, 1.5-0-1-0
  9. CANDEAMLO [Concomitant]
     Dosage: 5/8 MG, 1-0-0-0
  10. CLOPIDOGREL [Concomitant]
     Active Substance: CLOPIDOGREL BISULFATE
     Dosage: 75 MG, 1-0-0-0

REACTIONS (3)
  - Urinary tract obstruction [Unknown]
  - Renal failure [Unknown]
  - Ureteric dilatation [Unknown]
